FAERS Safety Report 11401003 (Version 1)
Quarter: 2015Q3

REPORT INFORMATION
  Report Type: Spontaneous
  Country: BR (occurrence: BR)
  Receive Date: 20150820
  Receipt Date: 20150820
  Transmission Date: 20151125
  Serious: Yes (Other)
  Sender: FDA-Public Use
  Company Number: PHHY2015BR098918

PATIENT
  Age: 7 Year
  Sex: Male

DRUGS (1)
  1. FLUOXETINE [Suspect]
     Active Substance: FLUOXETINE\FLUOXETINE HYDROCHLORIDE
     Indication: PRODUCT USED FOR UNKNOWN INDICATION
     Route: 064

REACTIONS (6)
  - Dermoid cyst [Unknown]
  - Microtia [Unknown]
  - Microsomia [Unknown]
  - Anotia [Unknown]
  - Foetal exposure during pregnancy [Unknown]
  - Oculoauriculovertebral dysplasia [Unknown]
